FAERS Safety Report 4839560-5 (Version None)
Quarter: 2005Q4

REPORT INFORMATION
  Report Type: 
  Country: None (occurrence: None)
  Receive Date: 20051128
  Receipt Date: 20051128
  Transmission Date: 20060501
  Serious: No
  Sender: FDA-Public Use
  Company Number: None

PATIENT
  Age: 53 Year
  Sex: Female
  Weight: 88.4514 kg

DRUGS (1)
  1. BREEZE NASAL SPRAY [Suspect]
     Indication: NASOPHARYNGITIS
     Dates: start: 20050401, end: 20050415

REACTIONS (1)
  - ANOSMIA [None]
